FAERS Safety Report 6543703-5 (Version None)
Quarter: 2010Q1

REPORT INFORMATION
  Report Type: 
  Country: None (occurrence: None)
  Receive Date: 20100119
  Receipt Date: 20100119
  Transmission Date: 20100710
  Serious: No
  Sender: FDA-Public Use
  Company Number: None

PATIENT
  Age: 56 Year
  Sex: Female
  Weight: 104.3273 kg

DRUGS (2)
  1. TYLENOLPM EXTRA -500MG ACETAMINOPHEN MCNEIL PPC  INC [Suspect]
     Indication: BURSITIS
     Dosage: 2 GELTABS ONCE AT BEDTIME PO
     Route: 048
     Dates: start: 20100103, end: 20100103
  2. TYLENOLPM EXTRA -500MG ACETAMINOPHEN MCNEIL PPC  INC [Suspect]
     Indication: SLEEP DISORDER
     Dosage: 2 GELTABS ONCE AT BEDTIME PO
     Route: 048
     Dates: start: 20100103, end: 20100103

REACTIONS (3)
  - DIARRHOEA [None]
  - IMPAIRED WORK ABILITY [None]
  - NAUSEA [None]
